FAERS Safety Report 11805250 (Version 1)
Quarter: 2015Q4

REPORT INFORMATION
  Report Type: Other
  Country: FR (occurrence: FR)
  Receive Date: 20151206
  Receipt Date: 20151206
  Transmission Date: 20160305
  Serious: Yes (Other)
  Sender: FDA-Public Use
  Company Number: FR-MYLANLABS-2015M1042717

PATIENT

DRUGS (17)
  1. VINCRISTINE HOSPIRA [Suspect]
     Active Substance: VINCRISTINE
     Dosage: 2 MG, UNK
     Route: 042
     Dates: start: 20131206, end: 20140415
  2. ENDOXAN                            /00021101/ [Suspect]
     Active Substance: CYCLOPHOSPHAMIDE
     Dosage: UNK
     Route: 042
     Dates: start: 20140512, end: 20140612
  3. COSMEGEN [Suspect]
     Active Substance: DACTINOMYCIN
     Dosage: UNK
     Route: 042
     Dates: start: 20140512, end: 20140612
  4. IFOSFAMIDE EG [Suspect]
     Active Substance: IFOSFAMIDE
     Indication: EWING^S SARCOMA
     Dosage: 4200 MG, UNK
     Route: 042
     Dates: start: 20130611, end: 20131004
  5. IFOSFAMIDE EG [Suspect]
     Active Substance: IFOSFAMIDE
     Dosage: UNK
     Route: 042
     Dates: start: 20131114, end: 20131116
  6. ADRIBLASTINE [Suspect]
     Active Substance: DOXORUBICIN
     Indication: EWING^S SARCOMA
     Dosage: 28 MG, UNK
     Route: 042
     Dates: start: 20130611, end: 20131004
  7. UROMITEXAN [Suspect]
     Active Substance: MESNA
     Indication: EWING^S SARCOMA
     Dosage: 5040 MG, UNK
     Route: 042
     Dates: start: 20130611, end: 20131004
  8. ETOPOSIDE MYLAN [Suspect]
     Active Substance: ETOPOSIDE
     Indication: EWING^S SARCOMA
     Dosage: 210 MG, UNK
     Route: 042
     Dates: start: 20130611, end: 20131004
  9. UROMITEXAN [Suspect]
     Active Substance: MESNA
     Dosage: UNK
     Route: 042
     Dates: start: 20140512, end: 20140612
  10. ENDOXAN                            /00021101/ [Suspect]
     Active Substance: CYCLOPHOSPHAMIDE
     Indication: EWING^S SARCOMA
     Dosage: UNK
     Route: 042
     Dates: start: 20131206, end: 20140415
  11. UROMITEXAN [Suspect]
     Active Substance: MESNA
     Dosage: UNK
     Route: 042
     Dates: start: 20131206, end: 20140415
  12. COSMEGEN [Suspect]
     Active Substance: DACTINOMYCIN
     Dosage: UNK
     Route: 042
     Dates: start: 20131206, end: 20140415
  13. VINCRISTINE HOSPIRA [Suspect]
     Active Substance: VINCRISTINE
     Indication: EWING^S SARCOMA
     Dosage: 2 MG, UNK
     Route: 042
     Dates: start: 20130611, end: 20131004
  14. COSMEGEN [Suspect]
     Active Substance: DACTINOMYCIN
     Indication: EWING^S SARCOMA
     Dosage: UNK
     Route: 042
     Dates: start: 20131114, end: 20131116
  15. VINCRISTINE HOSPIRA [Suspect]
     Active Substance: VINCRISTINE
     Dosage: 2 MG, UNK
     Route: 042
     Dates: start: 20140512, end: 20140612
  16. VINCRISTINE HOSPIRA [Suspect]
     Active Substance: VINCRISTINE
     Dosage: 2 MG, UNK
     Route: 042
     Dates: start: 20131114, end: 20131116
  17. UROMITEXAN [Suspect]
     Active Substance: MESNA
     Dosage: UNK
     Route: 042
     Dates: start: 20131114, end: 20131116

REACTIONS (2)
  - Renal tubular disorder [Recovered/Resolved with Sequelae]
  - Hypophosphataemia [Recovering/Resolving]
